FAERS Safety Report 10425122 (Version 1)
Quarter: 2014Q3

REPORT INFORMATION
  Report Type: Spontaneous
  Country: JP (occurrence: JP)
  Receive Date: 20140902
  Receipt Date: 20140902
  Transmission Date: 20150326
  Serious: Yes (Other)
  Sender: FDA-Public Use
  Company Number: JP-GLAXOSMITHKLINE-B1028406A

PATIENT
  Age: 35 Year
  Sex: Female

DRUGS (8)
  1. CALONAL [Concomitant]
     Active Substance: ACETAMINOPHEN
     Route: 065
     Dates: start: 20140820
  2. NEO-MEDROL [Concomitant]
     Active Substance: METHYLPREDNISOLONE\NEOMYCIN SULFATE
     Route: 061
     Dates: start: 20140822
  3. VALTREX [Suspect]
     Active Substance: VALACYCLOVIR HYDROCHLORIDE
     Indication: ORAL HERPES
     Dosage: 500MG TWICE PER DAY
     Route: 048
     Dates: start: 20140819, end: 20140823
  4. VALTREX [Suspect]
     Active Substance: VALACYCLOVIR HYDROCHLORIDE
     Indication: ORAL HERPES
     Dosage: 500MG TWICE PER DAY
     Route: 048
     Dates: start: 201312
  5. ZOVIRAX [Suspect]
     Active Substance: ACYCLOVIR
     Indication: ORAL HERPES
     Route: 042
     Dates: start: 20140819, end: 20140820
  6. COCARL [Concomitant]
     Active Substance: ACETAMINOPHEN
     Route: 048
     Dates: start: 20140820
  7. LOXONIN [Concomitant]
     Active Substance: LOXOPROFEN SODIUM
     Route: 061
     Dates: start: 20140820
  8. ZYRTEC [Concomitant]
     Active Substance: CETIRIZINE HYDROCHLORIDE
     Route: 048
     Dates: start: 20140822

REACTIONS (7)
  - Stevens-Johnson syndrome [Recovering/Resolving]
  - Eye swelling [Unknown]
  - Blister [Unknown]
  - Pruritus [Not Recovered/Not Resolved]
  - Ocular hyperaemia [Unknown]
  - Feeling abnormal [Unknown]
  - Oral mucosal blistering [Unknown]

NARRATIVE: CASE EVENT DATE: 201408
